FAERS Safety Report 23215821 (Version 1)
Quarter: 2023Q4

REPORT INFORMATION
  Report Type: Spontaneous
  Country: US (occurrence: US)
  Receive Date: 20231122
  Receipt Date: 20231122
  Transmission Date: 20240110
  Serious: No
  Sender: FDA-Public Use
  Company Number: ENDG23-04503

PATIENT
  Sex: Female

DRUGS (5)
  1. VARENICLINE [Suspect]
     Active Substance: VARENICLINE
     Indication: Smoking cessation therapy
     Dosage: 1 MG, BID, 1 MG IN DAYTIME AND 1 MG AT NIGHT
     Route: 048
  2. VARENICLINE [Suspect]
     Active Substance: VARENICLINE
     Dosage: 1 MG, SINGLE, AT NIGHT
     Route: 048
  3. VARENICLINE [Suspect]
     Active Substance: VARENICLINE
     Dosage: UNK UNKNOWN, UNKNOWN, SMALLER DOSES
     Route: 048
  4. LEXAPRO [Concomitant]
     Active Substance: ESCITALOPRAM OXALATE
     Indication: Product used for unknown indication
     Dosage: UNK UNKNOWN, UNKNOWN
     Route: 065
  5. METFORMIN [Concomitant]
     Active Substance: METFORMIN HYDROCHLORIDE
     Indication: Product used for unknown indication
     Dosage: UNK UNKNOWN, UNKNOWN
     Route: 065

REACTIONS (2)
  - Brain fog [Unknown]
  - Somnolence [Unknown]
